FAERS Safety Report 5159442-1 (Version None)
Quarter: 2006Q4

REPORT INFORMATION
  Report Type: 
  Country: None (occurrence: None)
  Receive Date: 20061122
  Receipt Date: 20061122
  Transmission Date: 20070319
  Serious: Yes (Other)
  Sender: FDA-Public Use
  Company Number: None

PATIENT
  Sex: Female
  Weight: 50.8029 kg

DRUGS (2)
  1. VESICARE [Suspect]
     Indication: HYPERTONIC BLADDER
     Dosage: 5MG QD
     Dates: start: 20060518
  2. VESICARE [Suspect]
     Indication: HYPERTONIC BLADDER
     Dosage: 5MG QD
     Dates: start: 20060614

REACTIONS (7)
  - BLOOD PRESSURE INCREASED [None]
  - BURNING SENSATION [None]
  - DEHYDRATION [None]
  - DEPRESSION [None]
  - INFLUENZA [None]
  - LOOSE TOOTH [None]
  - NAUSEA [None]
